FAERS Safety Report 4528854-9 (Version None)
Quarter: 2004Q4

REPORT INFORMATION
  Report Type: 
  Country: None (occurrence: None)
  Receive Date: 20041214
  Receipt Date: 20041129
  Transmission Date: 20050328
  Serious: Yes (Other)
  Sender: FDA-Public Use
  Company Number: 2004-DE-06028GD

PATIENT
  Age: 53 Year
  Sex: Male

DRUGS (1)
  1. NEVIRAPINE (NEVIRAPINE) (NEVIRAPINE) [Suspect]
     Indication: HIV INFECTION
     Dosage: 200 MG/D FOR 14 DAYS, FOLLOWED BY 200 MG TWICE DAILY PO
     Route: 048

REACTIONS (2)
  - DEPRESSION [None]
  - PANIC ATTACK [None]
